FAERS Safety Report 9467599 (Version 2)
Quarter: 2013Q3

REPORT INFORMATION
  Report Type: Spontaneous
  Country: US (occurrence: US)
  Receive Date: 20130821
  Receipt Date: 20130821
  Transmission Date: 20140515
  Serious: Yes (Other)
  Sender: FDA-Public Use
  Company Number: US-MYLANLABS-2013S1006972

PATIENT
  Age: 57 Year
  Sex: Male
  Weight: 104.33 kg

DRUGS (1)
  1. LISINOPRIL TABLETS, USP [Suspect]
     Indication: BLOOD PRESSURE INCREASED
     Route: 048
     Dates: start: 2011, end: 20130324

REACTIONS (1)
  - Anaphylactic reaction [Recovered/Resolved]
